FAERS Safety Report 17555185 (Version 1)
Quarter: 2020Q1

REPORT INFORMATION
  Report Type: Spontaneous
  Country: US (occurrence: US)
  Receive Date: 20200318
  Receipt Date: 20200318
  Transmission Date: 20200409
  Serious: Yes (Life-Threatening)
  Sender: FDA-Public Use
  Company Number: None

PATIENT
  Age: 54 Year
  Sex: Female
  Weight: 78.75 kg

DRUGS (1)
  1. DICLOFENAC SODIUM TOPICAL GEL 1 PERCENT [Suspect]
     Active Substance: DICLOFENAC SODIUM
     Indication: LIGAMENT INJURY
     Route: 061
     Dates: start: 20200220, end: 20200317

REACTIONS (1)
  - Chest pain [None]

NARRATIVE: CASE EVENT DATE: 20200313
